FAERS Safety Report 9885756 (Version 3)
Quarter: 2017Q3

REPORT INFORMATION
  Report Type: Spontaneous
  Country: US (occurrence: US)
  Receive Date: 20140210
  Receipt Date: 20170918
  Transmission Date: 20171128
  Serious: Yes (Hospitalization, Other)
  Sender: FDA-Public Use
  Company Number: US-009507513-1402USA003617

PATIENT
  Sex: Female

DRUGS (1)
  1. NUVARING [Suspect]
     Active Substance: ETHINYL ESTRADIOL\ETONOGESTREL
     Dosage: UNK
     Route: 067
     Dates: start: 20100422, end: 20100721

REACTIONS (13)
  - Asthma [Unknown]
  - Raynaud^s phenomenon [Unknown]
  - Pneumothorax spontaneous [Unknown]
  - Deep vein thrombosis [Unknown]
  - Pneumonia [Unknown]
  - Interstitial lung disease [Unknown]
  - Pulmonary embolism [Unknown]
  - Respiratory failure [Unknown]
  - Chest tube insertion [Unknown]
  - Vena cava filter insertion [Unknown]
  - Leukopenia [Unknown]
  - Antisynthetase syndrome [Unknown]
  - Hypercoagulation [Unknown]

NARRATIVE: CASE EVENT DATE: 201007
